FAERS Safety Report 21374445 (Version 1)
Quarter: 2022Q3

REPORT INFORMATION
  Report Type: Spontaneous
  Country: FR (occurrence: FR)
  Receive Date: 20220926
  Receipt Date: 20220926
  Transmission Date: 20221027
  Serious: Yes (Hospitalization)
  Sender: FDA-Public Use
  Company Number: None

PATIENT
  Age: 64 Year
  Sex: Male
  Weight: 70.6 kg

DRUGS (4)
  1. SANDOSTATIN [Suspect]
     Active Substance: OCTREOTIDE ACETATE
     Indication: Acute graft versus host disease in intestine
     Dosage: 100 UG, Q12H
     Route: 042
     Dates: start: 20220718, end: 20220725
  2. SANDOSTATIN [Suspect]
     Active Substance: OCTREOTIDE ACETATE
     Dosage: 400 UG, QD (100 ?G ? 11H ET 300 ?G ? 20 H)
     Route: 042
     Dates: start: 20220827, end: 20220827
  3. SANDOSTATIN [Suspect]
     Active Substance: OCTREOTIDE ACETATE
     Dosage: 600 UG, QD
     Route: 042
     Dates: start: 20220828, end: 20220829
  4. SANDOSTATIN [Suspect]
     Active Substance: OCTREOTIDE ACETATE
     Dosage: 900 UG, QD
     Route: 042
     Dates: start: 20220830

REACTIONS (1)
  - Pancreatitis [Recovering/Resolving]

NARRATIVE: CASE EVENT DATE: 20220830
